FAERS Safety Report 15655432 (Version 1)
Quarter: 2018Q4

REPORT INFORMATION
  Report Type: Spontaneous
  Country: US (occurrence: US)
  Receive Date: 20181126
  Receipt Date: 20181126
  Transmission Date: 20190205
  Serious: Yes (Hospitalization, Other)
  Sender: FDA-Public Use
  Company Number: US-BAYER-2018-216398

PATIENT
  Age: 46 Year
  Sex: Male

DRUGS (3)
  1. CIMETIDINE [Concomitant]
     Active Substance: CIMETIDINE
     Indication: GASTROOESOPHAGEAL REFLUX DISEASE
  2. IBUPROFEN. [Suspect]
     Active Substance: IBUPROFEN
     Dosage: 800 MG, BIW
  3. ACETYLSALICYLIC ACID({=100 MG) [Suspect]
     Active Substance: ASPIRIN
     Dosage: 75 MG, BIW

REACTIONS (6)
  - Eosinophilic oesophagitis [Unknown]
  - Haematemesis [Recovered/Resolved]
  - Syncope [Recovered/Resolved]
  - Oesophageal rupture [Recovering/Resolving]
  - Dizziness [Recovered/Resolved]
  - Dysphagia [Recovered/Resolved]
